FAERS Safety Report 16773374 (Version 1)
Quarter: 2019Q4

REPORT INFORMATION
  Report Type: Spontaneous
  Country: US (occurrence: US)
  Receive Date: 20190904
  Receipt Date: 20190904
  Transmission Date: 20200122
  Serious: No
  Sender: FDA-Public Use
  Company Number: None

PATIENT
  Sex: Female

DRUGS (2)
  1. METOPROLOL ER 100 [Suspect]
     Active Substance: METOPROLOL SUCCINATE
  2. TOPROL XL [Suspect]
     Active Substance: METOPROLOL SUCCINATE

REACTIONS (4)
  - Headache [None]
  - Nausea [None]
  - Dizziness [None]
  - Vomiting [None]
